FAERS Safety Report 16022889 (Version 1)
Quarter: 2019Q1

REPORT INFORMATION
  Report Type: Spontaneous
  Country: US (occurrence: US)
  Receive Date: 20190301
  Receipt Date: 20190301
  Transmission Date: 20190418
  Serious: No
  Sender: FDA-Public Use
  Company Number: US-PFIZER INC-2019092529

PATIENT
  Age: 48 Year
  Sex: Female

DRUGS (1)
  1. LYRICA [Suspect]
     Active Substance: PREGABALIN
     Indication: PHANTOM PAIN
     Dosage: 600 MG, DAILY (300MG IN THE MORNING, 150MG IN THE AFTERNOON, AND 150MG IN THE EVENING)

REACTIONS (1)
  - Product use in unapproved indication [Unknown]
